FAERS Safety Report 16195215 (Version 1)
Quarter: 2019Q2

REPORT INFORMATION
  Report Type: Spontaneous
  Country: US (occurrence: US)
  Receive Date: 20190415
  Receipt Date: 20190415
  Transmission Date: 20190711
  Serious: Yes (Death, Other)
  Sender: FDA-Public Use
  Company Number: US-CIPLA LTD.-2019US01887

PATIENT

DRUGS (23)
  1. FOLINIC ACID [Suspect]
     Active Substance: LEUCOVORIN
     Indication: COLON CANCER
     Dosage: UNK, FOLFOX REGIMEN
     Route: 065
  2. FLUOROURACIL. [Suspect]
     Active Substance: FLUOROURACIL
     Indication: COLON CANCER
     Dosage: UNK, FOLFOX REGIMEN
     Route: 065
  3. FLUOROURACIL. [Suspect]
     Active Substance: FLUOROURACIL
     Indication: COLON CANCER RECURRENT
     Dosage: UNK, FOLFIRI REGIMEN
     Route: 065
  4. FLUOROURACIL. [Suspect]
     Active Substance: FLUOROURACIL
     Dosage: UNK, 2 CYCLES OF ZFOLFIRI
     Route: 065
  5. IRINOTECAN [Suspect]
     Active Substance: IRINOTECAN
     Dosage: 144 MILLIGRAM/SQ. METER, CYCLE 1 OF ZFOLFIRI, UNK
     Route: 065
  6. FLUOROURACIL. [Suspect]
     Active Substance: FLUOROURACIL
     Dosage: 1920 MILLIGRAM/SQ. METER, CYCLE 1 OF ZFOLFIRI, UNK
     Route: 065
  7. FOLINIC ACID [Suspect]
     Active Substance: LEUCOVORIN
     Indication: COLON CANCER RECURRENT
     Dosage: UNK, FOLFIRI REGIMEN
     Route: 065
  8. TIPIRACIL [Suspect]
     Active Substance: TIPIRACIL
     Indication: COLON CANCER RECURRENT
     Dosage: UNK
     Route: 065
  9. ZALTRAP [Suspect]
     Active Substance: ZIV-AFLIBERCEPT
     Dosage: 4 MILLIGRAM/KILOGRAM, LAST CYCLE, UNK
     Route: 065
  10. IRINOTECAN [Suspect]
     Active Substance: IRINOTECAN
     Indication: COLON CANCER RECURRENT
     Dosage: UNK, FOLFIRI REGIMEN
     Route: 065
  11. FOLINIC ACID [Suspect]
     Active Substance: LEUCOVORIN
     Dosage: UNK, ZFOLFIRI REGIMEN
     Route: 065
  12. FLUOROURACIL. [Suspect]
     Active Substance: FLUOROURACIL
     Dosage: 1730 MILLIGRAM/SQ. METER, LAST CYCLE OF ZFOLFIRI, UNK
     Route: 065
  13. BEVACIZUMAB. [Suspect]
     Active Substance: BEVACIZUMAB
     Indication: COLON CANCER RECURRENT
     Dosage: UNK
     Route: 065
  14. FLUOROURACIL. [Suspect]
     Active Substance: FLUOROURACIL
     Dosage: UNK, FOLFIRI+BEVACIZUMAB
     Route: 065
  15. ZALTRAP [Suspect]
     Active Substance: ZIV-AFLIBERCEPT
     Indication: COLON CANCER RECURRENT
     Dosage: 4 MILLIGRAM/KILOGRAM, CYCLE 1, UNK
     Route: 065
  16. OXALIPLATIN. [Suspect]
     Active Substance: OXALIPLATIN
     Indication: COLON CANCER
     Dosage: UNK
     Route: 065
  17. FOLINIC ACID [Suspect]
     Active Substance: LEUCOVORIN
     Dosage: UNK, FOLFIRI+BEVACIZUMAB
     Route: 065
  18. TRIFLURIDINE. [Suspect]
     Active Substance: TRIFLURIDINE
     Indication: COLON CANCER RECURRENT
     Dosage: UNK
     Route: 065
  19. ZALTRAP [Suspect]
     Active Substance: ZIV-AFLIBERCEPT
     Dosage: UNK, 2 CYCLES
     Route: 065
  20. IRINOTECAN [Suspect]
     Active Substance: IRINOTECAN
     Dosage: UNK, FOLFIRI+BEVACIZUMAB
     Route: 065
  21. IRINOTECAN [Suspect]
     Active Substance: IRINOTECAN
     Dosage: UNK, 2 CYCLES OF ZFOLFIRI
     Route: 065
  22. REGORAFENIB. [Suspect]
     Active Substance: REGORAFENIB
     Indication: COLON CANCER RECURRENT
     Dosage: UNK
     Route: 065
  23. IRINOTECAN [Suspect]
     Active Substance: IRINOTECAN
     Dosage: 130 MILLIGRAM/SQ. METER, LAST CYCLE OF ZFOLFIRI, UNK
     Route: 065

REACTIONS (3)
  - Malignant neoplasm progression [Unknown]
  - Colon cancer recurrent [Unknown]
  - Death [Fatal]
